FAERS Safety Report 12193951 (Version 1)
Quarter: 2016Q1

REPORT INFORMATION
  Report Type: Spontaneous
  Country: US (occurrence: None)
  Receive Date: 20160318
  Receipt Date: 20160318
  Transmission Date: 20160526
  Serious: Yes (Death, Life-Threatening, Hospitalization)
  Sender: FDA-Public Use
  Company Number: None

PATIENT
  Age: 66 Year
  Sex: Female

DRUGS (2)
  1. LOVENOX [Suspect]
     Active Substance: ENOXAPARIN SODIUM
     Route: 058
  2. PRADAXA [Suspect]
     Active Substance: DABIGATRAN ETEXILATE MESYLATE
     Indication: THROMBOSIS PROPHYLAXIS
     Route: 048

REACTIONS (14)
  - Nausea [None]
  - Epistaxis [None]
  - Vomiting [None]
  - Pleural effusion [None]
  - Tachycardia [None]
  - Diarrhoea haemorrhagic [None]
  - Abdominal pain [None]
  - Neoplasm malignant [None]
  - Blood pressure decreased [None]
  - Abdominal distension [None]
  - Pulmonary mass [None]
  - Occult blood positive [None]
  - Gastrointestinal haemorrhage [None]
  - Small intestinal obstruction [None]

NARRATIVE: CASE EVENT DATE: 20150519
